FAERS Safety Report 7904655-6 (Version None)
Quarter: 2011Q4

REPORT INFORMATION
  Report Type: 
  Country: None (occurrence: None)
  Receive Date: 20111109
  Receipt Date: 20111028
  Transmission Date: 20120403
  Serious: Yes (Hospitalization, Congenital Anomaly)
  Sender: FDA-Public Use
  Company Number: US-GLAXOSMITHKLINE-A0950705A

PATIENT
  Sex: Male
  Weight: 3.8 kg

DRUGS (12)
  1. DECONGESTANT [Concomitant]
  2. CLOTRIMAZOLE [Concomitant]
  3. PAXIL [Suspect]
     Indication: PRODUCT USED FOR UNKNOWN INDICATION
     Dosage: 20MG PER DAY
     Route: 064
  4. TERAZOL 1 [Concomitant]
  5. ANUSOL [Concomitant]
  6. ANTACID [Concomitant]
  7. METRONIDAZOLE [Concomitant]
  8. MACRODANTIN [Concomitant]
  9. MULTI-VITAMINS [Concomitant]
  10. ANTIHISTAMINE [Concomitant]
  11. ERYTHROMYCIN [Concomitant]
  12. RANITIDINE [Concomitant]

REACTIONS (3)
  - AORTIC VALVE INCOMPETENCE [None]
  - BICUSPID AORTIC VALVE [None]
  - FOETAL EXPOSURE DURING PREGNANCY [None]
